FAERS Safety Report 4522433-5 (Version None)
Quarter: 2004Q4

REPORT INFORMATION
  Report Type: 
  Country: None (occurrence: None)
  Receive Date: 20041207
  Receipt Date: 20041122
  Transmission Date: 20050328
  Serious: Yes (Hospitalization)
  Sender: FDA-Public Use
  Company Number: 2004-00485

PATIENT
  Age: 58 Year
  Sex: Female

DRUGS (6)
  1. VELCADE [Suspect]
     Indication: MULTIPLE MYELOMA
     Dosage: 1.3MG/M2, 1/WEEK, INTRAVENOUS
     Route: 042
     Dates: start: 20040801, end: 20040904
  2. CLONIXIN (CLONIXIN) [Concomitant]
  3. TRAMADOL HCL [Concomitant]
  4. MORPHINE SULFATE [Concomitant]
  5. VENLAFAXINE (VENLAFAXINE) [Concomitant]
  6. ONDANSETRON HCL [Concomitant]

REACTIONS (2)
  - ERYTHEMA MULTIFORME [None]
  - NEUROPATHY [None]
